FAERS Safety Report 8567860-4 (Version None)
Quarter: 2012Q3

REPORT INFORMATION
  Report Type: 
  Country: None (occurrence: None)
  Receive Date: 20120803
  Receipt Date: 20120726
  Transmission Date: 20120928
  Serious: Yes (Other)
  Sender: FDA-Public Use
  Company Number: US-VERTEX PHARMACEUTICALS INC.-AE-2012-010354

PATIENT
  Sex: Male

DRUGS (3)
  1. INCIVEK [Suspect]
     Indication: HEPATITIS C
     Route: 048
     Dates: start: 20120629, end: 20120720
  2. PEGASYS [Concomitant]
     Indication: HEPATITIS C
     Dates: start: 20120629, end: 20120720
  3. RIBAVIRIN [Concomitant]
     Indication: HEPATITIS C
     Dates: start: 20120629, end: 20120720

REACTIONS (2)
  - FOOT OPERATION [None]
  - NAUSEA [None]
